FAERS Safety Report 4774695-7 (Version None)
Quarter: 2005Q3

REPORT INFORMATION
  Report Type: 
  Country: None (occurrence: None)
  Receive Date: 20050921
  Receipt Date: 20050912
  Transmission Date: 20060218
  Serious: Yes (Hospitalization)
  Sender: FDA-Public Use
  Company Number: US-ROCHE-417924

PATIENT
  Age: 55 Year
  Sex: Female
  Weight: 87.5 kg

DRUGS (4)
  1. PEGASYS [Suspect]
     Route: 058
     Dates: start: 20050701, end: 20050829
  2. COPEGUS [Suspect]
     Route: 048
     Dates: start: 20050701, end: 20050829
  3. ASPIRIN [Concomitant]
     Indication: ATRIAL FIBRILLATION
     Dosage: START DATE REPORTED AS 'YRS'.
     Route: 048
  4. VICODIN [Concomitant]
     Indication: BACK PAIN
     Dosage: START DATE REPORTED AS 'YRS'.
     Route: 048

REACTIONS (6)
  - ANAEMIA [None]
  - ATRIAL FIBRILLATION [None]
  - CHEST PAIN [None]
  - FATIGUE [None]
  - HEADACHE [None]
  - RETINAL EXUDATES [None]
